FAERS Safety Report 6324959-0 (Version None)
Quarter: 2009Q3

REPORT INFORMATION
  Report Type: 
  Country: None (occurrence: None)
  Receive Date: 20090824
  Receipt Date: 20090629
  Transmission Date: 20100115
  Serious: No
  Sender: FDA-Public Use
  Company Number: US-ABBOTT-09P-163-0580720-00

PATIENT
  Sex: Female
  Weight: 83.99 kg

DRUGS (13)
  1. NIASPAN [Suspect]
     Indication: BLOOD CHOLESTEROL INCREASED
     Route: 048
     Dates: start: 20090101, end: 20090101
  2. NIASPAN [Suspect]
     Indication: LOW DENSITY LIPOPROTEIN INCREASED
     Dates: start: 20090604
  3. ASPIRIN [Concomitant]
     Indication: DRUG USE FOR UNKNOWN INDICATION
     Dosage: QHS
     Route: 048
     Dates: start: 20090101
  4. NASONEX [Concomitant]
     Indication: SEASONAL ALLERGY
     Route: 045
  5. ZYRTEC [Concomitant]
     Indication: SEASONAL ALLERGY
  6. DILTIAZEM [Concomitant]
     Indication: HYPERTENSION
     Route: 048
  7. BENICAR HCT [Concomitant]
     Indication: HYPERTENSION
     Dosage: 40-12.5
     Route: 048
  8. MELOXICAM [Concomitant]
     Indication: ARTHROPATHY
     Route: 048
  9. ESTROGEN [Concomitant]
     Indication: MENOPAUSE
     Route: 048
  10. NEXIUM [Concomitant]
     Indication: GASTROOESOPHAGEAL REFLUX DISEASE
     Route: 048
  11. VITAMINS [Concomitant]
     Indication: VITAMIN SUPPLEMENTATION
  12. MAGNESIUM [Concomitant]
     Indication: MINERAL SUPPLEMENTATION
  13. FISH OIL [Concomitant]
     Indication: SUPPLEMENTATION THERAPY

REACTIONS (2)
  - FLUSHING [None]
  - PRURITUS [None]
